FAERS Safety Report 7261196-X (Version None)
Quarter: 2011Q1

REPORT INFORMATION
  Report Type: 
  Country: None (occurrence: None)
  Receive Date: 20110130
  Receipt Date: 20100913
  Transmission Date: 20110831
  Serious: No
  Sender: FDA-Public Use
  Company Number: US-ABBOTT-10P-163-0672048-00

PATIENT
  Sex: Female
  Weight: 61.29 kg

DRUGS (10)
  1. HUMIRA [Suspect]
     Indication: CROHN'S DISEASE
     Dates: start: 20100812
  2. BIOTIN [Concomitant]
     Indication: CROHN'S DISEASE
  3. NEXIUM [Concomitant]
     Indication: ABDOMINAL DISCOMFORT
  4. ACCU FLORA [Concomitant]
     Indication: SUPPLEMENTATION THERAPY
  5. COQ10 [Concomitant]
     Indication: CARDIOVASCULAR EVENT PROPHYLAXIS
  6. ASACOL [Concomitant]
     Indication: CROHN'S DISEASE
  7. VITAMIN B COMPLEX CAP [Concomitant]
     Indication: VITAMIN SUPPLEMENTATION
  8. VITAMIN B 3 [Concomitant]
     Indication: VITAMIN SUPPLEMENTATION
  9. MAGNESIUM [Concomitant]
     Indication: MINERAL SUPPLEMENTATION
  10. FISH OIL [Concomitant]
     Indication: MINERAL SUPPLEMENTATION

REACTIONS (2)
  - PALPITATIONS [None]
  - INJECTION SITE HAEMATOMA [None]
